FAERS Safety Report 8193751-7 (Version None)
Quarter: 2012Q1

REPORT INFORMATION
  Report Type: 
  Country: None (occurrence: None)
  Receive Date: 20120308
  Receipt Date: 20120301
  Transmission Date: 20120608
  Serious: Yes (Other)
  Sender: FDA-Public Use
  Company Number: IT-BRISTOL-MYERS SQUIBB COMPANY-16428971

PATIENT
  Sex: Female

DRUGS (1)
  1. ATAZANAVIR [Suspect]

REACTIONS (1)
  - THROMBOPHLEBITIS [None]
